FAERS Safety Report 10659852 (Version 1)
Quarter: 2014Q4

REPORT INFORMATION
  Report Type: Spontaneous
  Country: US (occurrence: US)
  Receive Date: 20141217
  Receipt Date: 20141217
  Transmission Date: 20150529
  Serious: Yes (Other)
  Sender: FDA-Public Use
  Company Number: US-SA-2014SA142607

PATIENT
  Sex: Female

DRUGS (2)
  1. THYROGEN [Suspect]
     Active Substance: THYROTROPIN ALFA
     Route: 065
     Dates: start: 20141013, end: 20141014
  2. HYDROCORTISONE. [Concomitant]
     Active Substance: HYDROCORTISONE
     Indication: RENAL DISORDER

REACTIONS (6)
  - Tremor [Unknown]
  - Hyperhidrosis [Unknown]
  - Hyperthyroidism [Unknown]
  - Dyspnoea [Unknown]
  - Heart rate increased [Unknown]
  - Anxiety [Unknown]

NARRATIVE: CASE EVENT DATE: 201410
